FAERS Safety Report 7527915-X (Version None)
Quarter: 2011Q2

REPORT INFORMATION
  Report Type: 
  Country: None (occurrence: None)
  Receive Date: 20110513
  Receipt Date: 20101008
  Transmission Date: 20111010
  Serious: Yes (Hospitalization)
  Sender: FDA-Public Use
  Company Number: PIR#1009027

PATIENT
  Age: 51 Year
  Weight: 90.9 kg

DRUGS (1)
  1. CEFTRIAXONE [Suspect]
     Indication: MENINGITIS
     Dosage: TWICE DAILY I.V.
     Route: 042
     Dates: start: 20100921, end: 20100930

REACTIONS (1)
  - TREATMENT FAILURE [None]
